FAERS Safety Report 20329235 (Version 1)
Quarter: 2022Q1

REPORT INFORMATION
  Report Type: Report from Study
  Country: CA (occurrence: CA)
  Receive Date: 20220112
  Receipt Date: 20220112
  Transmission Date: 20220424
  Serious: Yes (Death, Other)
  Sender: FDA-Public Use
  Company Number: CA-BAYER-2022A003772

PATIENT

DRUGS (1)
  1. EYLEA [Suspect]
     Active Substance: AFLIBERCEPT
     Indication: Product used for unknown indication
     Dosage: UNKNOWN TOTAL NUMBER OF DOSES OF EYLEA
     Dates: start: 20170125

REACTIONS (1)
  - Death [Fatal]

NARRATIVE: CASE EVENT DATE: 20191212
